FAERS Safety Report 10386577 (Version 1)
Quarter: 2014Q3

REPORT INFORMATION
  Report Type: Spontaneous
  Country: US (occurrence: None)
  Receive Date: 20140814
  Receipt Date: 20140814
  Transmission Date: 20150326
  Serious: Yes (Hospitalization)
  Sender: FDA-Public Use
  Company Number: None

PATIENT
  Age: 60 Year
  Sex: Male

DRUGS (7)
  1. ONDANSETRON [Concomitant]
     Active Substance: ONDANSETRON
  2. POMALYST [Suspect]
     Active Substance: POMALIDOMIDE
     Indication: PLASMA CELL MYELOMA
     Dosage: 2 MG DAILY X21D/28D ORALLY
     Route: 048
     Dates: start: 201310
  3. ACOPOLAMINE [Concomitant]
  4. HYDROMORPHONE [Concomitant]
     Active Substance: HYDROMORPHONE
  5. ALTEPLASE [Concomitant]
     Active Substance: ALTEPLASE
  6. ACYCLOVIR. [Concomitant]
     Active Substance: ACYCLOVIR
  7. FUROSEMIDE. [Concomitant]
     Active Substance: FUROSEMIDE

REACTIONS (2)
  - Febrile neutropenia [None]
  - Asthenia [None]

NARRATIVE: CASE EVENT DATE: 20140806
